FAERS Safety Report 21334233 (Version 1)
Quarter: 2022Q3

REPORT INFORMATION
  Report Type: Spontaneous
  Country: JP (occurrence: JP)
  Receive Date: 20220914
  Receipt Date: 20220914
  Transmission Date: 20221026
  Serious: Yes (Other)
  Sender: FDA-Public Use
  Company Number: JP-PFIZER INC-202201132960

PATIENT
  Age: 50 Year
  Sex: Female

DRUGS (2)
  1. PREMARIN [Suspect]
     Active Substance: ESTROGENS, CONJUGATED
     Indication: Infertility female
     Dosage: UNK
  2. GONADORELIN [Suspect]
     Active Substance: GONADORELIN
     Indication: Infertility female
     Dosage: UNK

REACTIONS (1)
  - Drug eruption [Unknown]
